FAERS Safety Report 6476618-1 (Version None)
Quarter: 2009Q4

REPORT INFORMATION
  Report Type: 
  Country: None (occurrence: None)
  Receive Date: 20091204
  Receipt Date: 20091204
  Transmission Date: 20100525
  Serious: Yes (Disabling)
  Sender: FDA-Public Use
  Company Number: None

PATIENT
  Age: 43 Year
  Sex: Male
  Weight: 105.6881 kg

DRUGS (1)
  1. TRICOR [Suspect]
     Indication: HYPERCHOLESTEROLAEMIA
     Dosage: 145 MG ONCE QD PO
     Route: 048
     Dates: end: 20091110

REACTIONS (3)
  - GAIT DISTURBANCE [None]
  - INSOMNIA [None]
  - MYALGIA [None]
